FAERS Safety Report 23937445 (Version 1)
Quarter: 2024Q2

REPORT INFORMATION
  Report Type: Spontaneous
  Country: CN (occurrence: CN)
  Receive Date: 20240604
  Receipt Date: 20240604
  Transmission Date: 20240715
  Serious: Yes (Hospitalization, Other)
  Sender: FDA-Public Use
  Company Number: CN-LEADINGPHARMA-CN-2024LEALIT00191

PATIENT
  Sex: Female
  Weight: 4.4 kg

DRUGS (4)
  1. HYDROCHLOROTHIAZIDE [Suspect]
     Active Substance: HYDROCHLOROTHIAZIDE
     Indication: Product used for unknown indication
     Route: 065
  2. DIGOXIN [Suspect]
     Active Substance: DIGOXIN
     Indication: Product used for unknown indication
     Dosage: 0.9 ML (0.045 MG)
     Route: 048
  3. SPIRONOLACTONE [Suspect]
     Active Substance: SPIRONOLACTONE
     Indication: Product used for unknown indication
     Route: 065
  4. CAPTOPRIL [Suspect]
     Active Substance: CAPTOPRIL
     Indication: Product used for unknown indication
     Route: 065

REACTIONS (7)
  - Arrhythmia [Unknown]
  - Atrioventricular block complete [Unknown]
  - Electrocardiogram ST-T segment abnormal [Unknown]
  - Heart rate decreased [Unknown]
  - Bundle branch block right [Unknown]
  - Toxicity to various agents [Unknown]
  - Drug interaction [Unknown]
